APPROVED DRUG PRODUCT: POTASSIUM PHOSPHATES IN 0.9% SODIUM CHLORIDE
Active Ingredient: POTASSIUM PHOSPHATE, DIBASIC; POTASSIUM PHOSPHATE, MONOBASIC
Strength: 1.18GM/250ML (4.72MG/ML);1.12GM/250ML (4.48MG/ML)
Dosage Form/Route: SOLUTION;INTRAVENOUS
Application: N218343 | Product #001
Applicant: AMNEAL EU LTD
Approved: Jul 26, 2024 | RLD: Yes | RS: Yes | Type: RX